FAERS Safety Report 21103989 (Version 2)
Quarter: 2022Q3

REPORT INFORMATION
  Report Type: Report from Study
  Country: PL (occurrence: PL)
  Receive Date: 20220720
  Receipt Date: 20220725
  Transmission Date: 20221027
  Serious: Yes (Death)
  Sender: FDA-Public Use
  Company Number: PL-EXELIXIS-XL18422054105

PATIENT

DRUGS (21)
  1. CABOZANTINIB [Suspect]
     Active Substance: CABOZANTINIB
     Indication: Renal cell carcinoma
     Dosage: 60 MG, QD
     Route: 048
     Dates: start: 20210310
  2. CABOZANTINIB [Suspect]
     Active Substance: CABOZANTINIB
     Dosage: 20 MG
     Route: 048
  3. ATEZOLIZUMAB [Suspect]
     Active Substance: ATEZOLIZUMAB
     Indication: Renal cell carcinoma
     Dosage: 1200 MG, Q3WEEKS
     Route: 042
     Dates: start: 20210310
  4. METOPROLOL SUCCINATE [Concomitant]
     Active Substance: METOPROLOL SUCCINATE
     Indication: Hypertension
     Dosage: 50 MG, QD
     Route: 048
     Dates: start: 20210331
  5. LEVOTHYROXINE SODIUM [Concomitant]
     Active Substance: LEVOTHYROXINE SODIUM
     Indication: Hypothyroidism
     Dosage: 100 UG, QD
     Route: 048
     Dates: start: 20210421
  6. LEVOTHYROXINE SODIUM [Concomitant]
     Active Substance: LEVOTHYROXINE SODIUM
     Indication: Hypertension
     Dosage: 175 UG, QD
     Route: 048
     Dates: start: 20211117
  7. ALLOPURINOL [Concomitant]
     Active Substance: ALLOPURINOL
     Indication: Prophylaxis
     Dosage: 100 MG, QD
     Route: 048
     Dates: start: 20210421
  8. HEPATIL [Concomitant]
     Indication: Prophylaxis
     Dosage: 3 TABLET, QD
     Route: 048
     Dates: start: 20210421
  9. CITALOPRAM HYDROBROMIDE [Concomitant]
     Active Substance: CITALOPRAM HYDROBROMIDE
     Indication: Prophylaxis
     Dosage: 20 MG, QD
     Route: 048
     Dates: start: 20210421
  10. FLUDROCORTISONE [Concomitant]
     Active Substance: FLUDROCORTISONE
     Indication: Prophylaxis
     Dosage: 0.1 MG, QD
     Route: 048
     Dates: start: 20210421
  11. Calperos [Concomitant]
     Indication: Prophylaxis
     Dosage: 1000 MG, QD
     Route: 048
     Dates: start: 20210421
  12. LACTULOSE [Concomitant]
     Active Substance: LACTULOSE
     Indication: Constipation
     Dosage: 20 ML, QD
     Route: 048
     Dates: start: 20210421
  13. MAGNES [Concomitant]
     Dosage: 1 TABLET, QD
     Route: 048
     Dates: start: 20210623
  14. NEBIVOLOL [Concomitant]
     Active Substance: NEBIVOLOL
     Indication: Hypertension
     Dosage: 5 MG, QD
     Route: 048
     Dates: start: 20210621
  15. KAPILOP [Concomitant]
     Dosage: UNK
  16. SPIRONOLACTONE [Concomitant]
     Active Substance: SPIRONOLACTONE
     Indication: Peripheral swelling
     Dosage: 50 MG, QD
     Route: 048
     Dates: start: 20211117
  17. HEPAREGEN [Concomitant]
     Indication: Aspartate aminotransferase increased
     Dosage: 200 MG, QD
     Route: 048
     Dates: start: 20211117
  18. Vivace [Concomitant]
     Indication: Proteinuria
     Dosage: 5 MG, QD
     Route: 048
     Dates: start: 20211117
  19. ZALDIAR [Concomitant]
     Active Substance: ACETAMINOPHEN\TRAMADOL HYDROCHLORIDE
     Dosage: UNK
  20. COVID-19 vaccine [Concomitant]
     Dosage: UNK
  21. VITRUM CALCIUM + VIT D3 [Concomitant]
     Dosage: UNK

REACTIONS (1)
  - Death [Fatal]

NARRATIVE: CASE EVENT DATE: 20220127
